FAERS Safety Report 15841412 (Version 4)
Quarter: 2020Q1

REPORT INFORMATION
  Report Type: Report from Study
  Country: DK (occurrence: DK)
  Receive Date: 20190118
  Receipt Date: 20200324
  Transmission Date: 20200409
  Serious: Yes (Hospitalization)
  Sender: FDA-Public Use
  Company Number: DK-ROCHE-2243265

PATIENT
  Age: 59 Year
  Sex: Male
  Weight: 72 kg

DRUGS (15)
  1. BIOCLAVID [Concomitant]
     Active Substance: AMOXICILLIN\CLAVULANIC ACID
     Route: 048
     Dates: start: 20180417, end: 20180425
  2. OXYGEN. [Concomitant]
     Active Substance: OXYGEN
     Route: 042
     Dates: start: 20180417, end: 20180417
  3. PREDNISOLONE. [Concomitant]
     Active Substance: PREDNISOLONE
     Route: 048
     Dates: start: 20180422, end: 20180425
  4. TINZAPARIN [Concomitant]
     Active Substance: TINZAPARIN
  5. RO6958688 (T-CELL BISPECIFIC MONOCLONAL ANTIBODY) [Suspect]
     Active Substance: CIBISATAMAB
     Indication: COLORECTAL CANCER METASTATIC
     Dosage: THE PATIENT^S LAST DOSE OF RO 6958688 PRIOR TO FIRST OCCURRENCE DYSPNOE ON 10/APR/2018 AND ON 17/APR
     Route: 042
     Dates: start: 20180410
  6. IBUPROFEN. [Concomitant]
     Active Substance: IBUPROFEN
  7. ATEZOLIZUMAB. [Suspect]
     Active Substance: ATEZOLIZUMAB
     Indication: COLORECTAL CANCER METASTATIC
     Dosage: THE PATIENT^S LAST DOSE OF ATEZOLIZUMAB PRIOR TO FIRST AND SECOND OCCURRENCE OF DYSPNOE ON 10/APR/20
     Route: 042
     Dates: start: 20180410
  8. LOPERAMIDE HYDROCHLORIDE. [Concomitant]
     Active Substance: LOPERAMIDE HYDROCHLORIDE
  9. PREDNISOLONE. [Concomitant]
     Active Substance: PREDNISOLONE
     Route: 048
     Dates: start: 20180417, end: 20180421
  10. PREDNISOLONE. [Concomitant]
     Active Substance: PREDNISOLONE
     Route: 048
     Dates: start: 20180426, end: 20180429
  11. PANTOPRAZOLE SODIUM SESQUIHYDRATE [Concomitant]
     Active Substance: PANTOPRAZOLE SODIUM
  12. PANTOPRAZOLE SODIUM. [Concomitant]
     Active Substance: PANTOPRAZOLE SODIUM
  13. BIOCLAVID [Concomitant]
     Active Substance: AMOXICILLIN\CLAVULANIC ACID
     Route: 048
     Dates: start: 20180413, end: 20180414
  14. PIPERACILLIN/TAZOBACTAM [Concomitant]
     Active Substance: PIPERACILLIN SODIUM\TAZOBACTAM SODIUM
     Route: 048
     Dates: start: 20180414, end: 20180417
  15. AZELASTINE. [Concomitant]
     Active Substance: AZELASTINE HYDROCHLORIDE

REACTIONS (2)
  - Dyspnoea [Recovered/Resolved]
  - Tumour inflammation [Recovered/Resolved]

NARRATIVE: CASE EVENT DATE: 20180410
